FAERS Safety Report 4996440-2 (Version None)
Quarter: 2006Q2

REPORT INFORMATION
  Report Type: 
  Country: None (occurrence: None)
  Receive Date: 20060505
  Receipt Date: 20060424
  Transmission Date: 20061013
  Serious: Yes (Hospitalization)
  Sender: FDA-Public Use
  Company Number: 2006056083

PATIENT
  Age: 77 Year
  Sex: Female

DRUGS (7)
  1. GENOTROPIN [Suspect]
     Indication: HYPOPITUITARISM
     Dosage: 0.4 MG (0.4 MG, DAILY)
     Dates: start: 19971001
  2. LASIX [Suspect]
     Indication: HYPERTENSION
     Dosage: ORAL
     Route: 048
  3. K CL TAB [Suspect]
     Indication: ILL-DEFINED DISORDER
     Dosage: 750 MG, ORAL
     Route: 048
  4. AMILORIDE (AMILORIDE) [Suspect]
     Indication: ILL-DEFINED DISORDER
     Dosage: 5 MG (5 MG, DAILY), ORAL
     Route: 048
  5. LEVOTHYROXINE SODIUM [Concomitant]
  6. INSULIN [Concomitant]
  7. PLENDIL [Concomitant]

REACTIONS (2)
  - ARRHYTHMIA SUPRAVENTRICULAR [None]
  - TACHYCARDIA [None]
